FAERS Safety Report 7884585-9 (Version None)
Quarter: 2011Q4

REPORT INFORMATION
  Report Type: 
  Country: None (occurrence: None)
  Receive Date: 20111102
  Receipt Date: 20110426
  Transmission Date: 20120403
  Serious: Yes (Hospitalization)
  Sender: FDA-Public Use
  Company Number: DE-UCBSA-031136

PATIENT
  Age: 57 Year
  Sex: Male

DRUGS (50)
  1. NEUPRO [Suspect]
     Route: 062
     Dates: start: 20081103, end: 20081109
  2. NEUPRO [Suspect]
     Route: 062
     Dates: start: 20090501, end: 20090507
  3. CLARIUM [Concomitant]
     Dates: start: 20101004
  4. PRIMIDONE [Concomitant]
     Dates: start: 20080707, end: 20080708
  5. PRIMIDONE [Concomitant]
     Dates: start: 20100921, end: 20101004
  6. CLARIUM [Concomitant]
     Dates: start: 20081111, end: 20090312
  7. MADOPAR [Concomitant]
     Dosage: 50/12.5 MG: OTHER: 1-0-1/2
     Dates: start: 20101012, end: 20101013
  8. MADOPAR [Concomitant]
     Dosage: 100/25MG OTHER: 1/2 -0 - 3/4
     Dates: start: 20101015, end: 20101020
  9. NEUPRO [Suspect]
     Route: 062
     Dates: start: 20090608, end: 20090625
  10. NEUPRO [Suspect]
     Route: 062
     Dates: start: 20090626, end: 20101004
  11. NEUPRO [Suspect]
     Route: 062
     Dates: start: 20101018
  12. MADOPAR DEPOT [Concomitant]
     Dosage: 100 MG: OTHER: 3/4
     Dates: start: 20101014, end: 20101014
  13. MADOPAR [Concomitant]
     Dosage: 50/12.5 MG TWICE DAILY
     Dates: start: 20101004, end: 20101011
  14. SEROQUEL [Concomitant]
     Indication: SLEEP DISORDER
     Dates: start: 20101206, end: 20101206
  15. SEROQUEL [Concomitant]
     Dates: start: 20101007, end: 20101011
  16. NEUPRO [Suspect]
     Route: 062
     Dates: start: 20080609, end: 20080619
  17. NEUPRO [Suspect]
     Route: 062
     Dates: start: 20080620, end: 20080622
  18. NEUPRO [Suspect]
     Route: 062
     Dates: start: 20080623, end: 20081102
  19. NEUPRO [Suspect]
     Route: 062
     Dates: start: 20090303, end: 20090430
  20. PRIMIDONE [Concomitant]
     Dates: start: 20080710, end: 20080901
  21. PRIMIDONE [Concomitant]
     Dates: start: 20101008
  22. CLARIUM [Concomitant]
     Dates: start: 20081109, end: 20081110
  23. CLARIUM [Concomitant]
     Dosage: OTHER: 2- 1 -1
     Dates: start: 20090313, end: 20090608
  24. MADOPAR [Concomitant]
     Dosage: 100/25 MG OTHER: 1/2-1/2-3/4
     Dates: start: 20101021, end: 20110101
  25. SEROQUEL [Concomitant]
     Dates: start: 20101018, end: 20101020
  26. SEROQUEL [Concomitant]
     Dates: start: 20101021, end: 20110101
  27. NEUPRO [Suspect]
     Route: 062
     Dates: start: 20081110, end: 20090302
  28. NEUPRO [Suspect]
     Route: 062
     Dates: start: 20101005, end: 20101007
  29. NEUPRO [Suspect]
     Route: 062
     Dates: start: 20101012, end: 20101012
  30. NEUPRO [Suspect]
     Route: 062
     Dates: start: 20101013, end: 20101013
  31. PRIMIDONE [Concomitant]
     Dates: start: 20080709, end: 20080709
  32. PRIMIDONE [Concomitant]
     Dosage: OTHER: 2-0-1
     Dates: start: 20080916, end: 20081103
  33. CLARIUM [Concomitant]
     Dates: start: 20081104, end: 20081108
  34. CLARIUM [Concomitant]
     Dosage: OTHER: 2-0-1
     Dates: start: 20090509, end: 20091109
  35. MADOPAR DEPOT [Concomitant]
     Dates: start: 20100608, end: 20101013
  36. MADOPAR DEPOT [Concomitant]
     Dates: start: 20101015, end: 20101028
  37. MADOPAR DEPOT [Concomitant]
     Dates: start: 20101029
  38. MADOPAR [Concomitant]
     Dosage: 100/25 MG OTHER: 2/1/1
     Dates: start: 20110101
  39. PRIMIDONE [Concomitant]
     Dates: start: 20100423, end: 20100720
  40. PRIMIDONE [Concomitant]
     Dosage: OTHER: 1-0-2
     Dates: start: 20100721, end: 20100920
  41. SEROQUEL [Concomitant]
     Dates: start: 20101012, end: 20101017
  42. NEUPRO [Suspect]
     Route: 062
     Dates: start: 20101014, end: 20101017
  43. PRIMIDONE [Concomitant]
     Dates: start: 20081111, end: 20100422
  44. PRIMIDONE [Concomitant]
     Dates: start: 20101005, end: 20101007
  45. SEROQUEL [Concomitant]
     Dates: start: 20110101
  46. NEUPRO [Suspect]
     Indication: PARKINSON'S DISEASE
     Route: 062
     Dates: start: 20080604, end: 20080608
  47. NEUPRO [Suspect]
     Route: 062
     Dates: start: 20101008, end: 20101011
  48. PRIMIDONE [Concomitant]
     Dates: start: 20081104, end: 20081110
  49. CLARIUM [Concomitant]
     Dosage: OTHER:2-1-1
     Dates: start: 20091110, end: 20101003
  50. MADOPAR [Concomitant]
     Dosage: 50/12.5 MG TWICE DAILY
     Dates: start: 20101014, end: 20101014

REACTIONS (1)
  - INGUINAL HERNIA [None]
